FAERS Safety Report 9193772 (Version 2)
Quarter: 2013Q2

REPORT INFORMATION
  Report Type: Spontaneous
  Country: US (occurrence: None)
  Receive Date: 20120703
  Receipt Date: 20130107
  Transmission Date: 20140414
  Serious: No
  Sender: FDA-Public Use
  Company Number: PHEH2012US006323

PATIENT
  Age: 56 Year
  Sex: Female

DRUGS (4)
  1. GILENYA (FTY) CAPSULE, 0.5MG [Suspect]
     Indication: MULTIPLE SCLEROSIS
     Route: 048
     Dates: start: 20111128
  2. BACLOFEN (BACLOFEN) TABLET [Concomitant]
  3. SULFAMETHOXAZOLE (SULFAMETHOXAZOLE) TABLET [Concomitant]
  4. XIFAXAN (RIFAXIMIN) TABLET, 200 MG [Concomitant]

REACTIONS (2)
  - Weight increased [None]
  - Hepatic enzyme increased [None]
